FAERS Safety Report 7841843-1 (Version None)
Quarter: 2011Q4

REPORT INFORMATION
  Report Type: 
  Country: None (occurrence: None)
  Receive Date: 20111025
  Receipt Date: 20111017
  Transmission Date: 20120403
  Serious: Yes (Other)
  Sender: FDA-Public Use
  Company Number: FR-SANOFI-AVENTIS-2011SA067944

PATIENT
  Age: 65 Year
  Sex: Male
  Weight: 64 kg

DRUGS (4)
  1. TADENAN [Concomitant]
     Route: 048
  2. ALFUZOSIN HCL [Suspect]
     Indication: PROSTATIC DISORDER
     Route: 048
     Dates: start: 20090101
  3. BEROCCA C [Concomitant]
     Route: 048
  4. TANAKAN [Concomitant]
     Route: 048

REACTIONS (1)
  - BONE MARROW FAILURE [None]
